FAERS Safety Report 5364062-X (Version None)
Quarter: 2007Q2

REPORT INFORMATION
  Report Type: 
  Country: None (occurrence: None)
  Receive Date: 20070620
  Receipt Date: 20070612
  Transmission Date: 20071010
  Serious: Yes (Other)
  Sender: FDA-Public Use
  Company Number: FR-ASTRAZENECA-2007CG00817

PATIENT
  Age: 43 Year
  Sex: Female
  Weight: 105.6 kg

DRUGS (7)
  1. OMEPRAZOLE [Suspect]
     Indication: GASTROOESOPHAGEAL REFLUX DISEASE
     Route: 048
     Dates: start: 20070524, end: 20070524
  2. OMEPRAZOLE [Concomitant]
     Indication: GASTROOESOPHAGEAL REFLUX DISEASE
     Dates: end: 20070523
  3. DESLORATADINE [Concomitant]
     Indication: ASTHMA
  4. SINGULAIR [Concomitant]
     Indication: ASTHMA
  5. PARACETAMOL [Concomitant]
  6. MEGAMYLASE [Concomitant]
     Indication: BRONCHITIS
     Route: 048
     Dates: start: 20070514, end: 20070519
  7. AGRAM [Concomitant]
     Indication: BRONCHITIS
     Dates: start: 20070514, end: 20070519

REACTIONS (2)
  - ANGIOEDEMA [None]
  - DYSPNOEA [None]
